FAERS Safety Report 21995114 (Version 1)
Quarter: 2023Q1

REPORT INFORMATION
  Report Type: Spontaneous
  Country: US (occurrence: None)
  Receive Date: 20230214
  Receipt Date: 20230214
  Transmission Date: 20230418
  Serious: Yes (Other)
  Sender: FDA-Public Use
  Company Number: None

PATIENT
  Age: 73 Year
  Sex: Male
  Weight: 101 kg

DRUGS (17)
  1. CALQUENCE [Suspect]
     Active Substance: ACALABRUTINIB
     Indication: Chronic lymphocytic leukaemia
     Dosage: FREQUENCY : TWICE A DAY;?
     Route: 048
     Dates: start: 20221111
  2. ASCORBIC ACID [Concomitant]
     Active Substance: ASCORBIC ACID
  3. ASTELIN [Concomitant]
     Active Substance: AZELASTINE HYDROCHLORIDE
  4. CHOLECALCIFEROL [Concomitant]
     Active Substance: CHOLECALCIFEROL
  5. EZETIMIBE [Concomitant]
     Active Substance: EZETIMIBE
  6. FAMOTIDINE [Concomitant]
     Active Substance: FAMOTIDINE
  7. LORAZEPAM [Concomitant]
     Active Substance: LORAZEPAM
  8. MELOXICAM [Concomitant]
     Active Substance: MELOXICAM
  9. METFORMIN [Concomitant]
     Active Substance: METFORMIN HYDROCHLORIDE
  10. VITAMINS [Concomitant]
     Active Substance: VITAMINS
  11. prednisolone opthalmic suspension [Concomitant]
  12. ROSUVASTATIN [Concomitant]
     Active Substance: ROSUVASTATIN
  13. SELENIUM [Concomitant]
     Active Substance: SELENIUM
  14. RYBELSUS [Concomitant]
     Active Substance: SEMAGLUTIDE
  15. TRIAMCINOLONE [Concomitant]
     Active Substance: TRIAMCINOLONE
  16. VENLAFAXINE [Concomitant]
     Active Substance: VENLAFAXINE HYDROCHLORIDE
  17. VITAMIN B COMPLEX [Concomitant]
     Active Substance: CYANOCOBALAMIN\DEXPANTHENOL\NIACINAMIDE\PYRIDOXINE HYDROCHLORIDE\RIBOFLAVIN 5^-PHOSPHATE SODIUM\THIA

REACTIONS (2)
  - Product dosage form issue [None]
  - Drug eruption [None]

NARRATIVE: CASE EVENT DATE: 20230214
